FAERS Safety Report 6202889-2 (Version None)
Quarter: 2009Q2

REPORT INFORMATION
  Report Type: 
  Country: None (occurrence: None)
  Receive Date: 20090520
  Receipt Date: 20090505
  Transmission Date: 20091009
  Serious: Yes (Hospitalization)
  Sender: FDA-Public Use
  Company Number: 2009S1003265

PATIENT
  Sex: Female

DRUGS (3)
  1. PHENYTOIN [Suspect]
     Indication: GRAND MAL CONVULSION
     Dosage: 600 MG; DAILY;
  2. VALPROIC ACID [Suspect]
     Indication: GRAND MAL CONVULSION
  3. CLONAZEPAM [Concomitant]

REACTIONS (16)
  - AMYOTROPHIC LATERAL SCLEROSIS [None]
  - ANTICONVULSANT DRUG LEVEL INCREASED [None]
  - ASPIRATION [None]
  - ASTHENIA [None]
  - DIPLOPIA [None]
  - DYSARTHRIA [None]
  - DYSPHAGIA [None]
  - HEPATIC STEATOSIS [None]
  - HYPERREFLEXIA [None]
  - HYPOALBUMINAEMIA [None]
  - LIVER FUNCTION TEST ABNORMAL [None]
  - LOWER RESPIRATORY TRACT INFECTION [None]
  - MOTOR NEURONE DISEASE [None]
  - MUSCLE CONTRACTIONS INVOLUNTARY [None]
  - SEPSIS [None]
  - WEIGHT DECREASED [None]
